FAERS Safety Report 4522993-4 (Version None)
Quarter: 2004Q4

REPORT INFORMATION
  Report Type: 
  Country: None (occurrence: None)
  Receive Date: 20041208
  Receipt Date: 20041122
  Transmission Date: 20050328
  Serious: Yes (Life-Threatening)
  Sender: FDA-Public Use
  Company Number: 2004AP05878

PATIENT
  Age: 55 Year
  Sex: Male
  Weight: 75 kg

DRUGS (14)
  1. OMEPRAL [Suspect]
     Indication: GASTRITIS HAEMORRHAGIC
     Dosage: 10 MG DAILY PO
     Route: 048
     Dates: start: 20040520, end: 20041116
  2. NO MATCH [Suspect]
     Dosage: HALF TAKEN EVERY DAY
     Dates: start: 20040101, end: 20040101
  3. ASPIRIN [Concomitant]
  4. KERLONG [Concomitant]
  5. ALFAROL [Concomitant]
  6. WARFARIN SODIUM [Concomitant]
  7. INSULIN [Concomitant]
  8. NU LOTAN [Concomitant]
  9. PANALDINE [Concomitant]
  10. CALTAN [Concomitant]
  11. SALOBEL [Concomitant]
  12. MUCOSTA [Concomitant]
  13. LORAZEPAM [Concomitant]
  14. LASIX [Concomitant]

REACTIONS (8)
  - ACUTE MYOCARDIAL INFARCTION [None]
  - ARRHYTHMIA [None]
  - ATRIOVENTRICULAR BLOCK [None]
  - BLOOD PRESSURE DECREASED [None]
  - BRADYCARDIA [None]
  - HAEMODIALYSIS [None]
  - HYPERKALAEMIA [None]
  - LOSS OF CONSCIOUSNESS [None]
